FAERS Safety Report 16868442 (Version 1)
Quarter: 2019Q3

REPORT INFORMATION
  Report Type: Spontaneous
  Country: US (occurrence: US)
  Receive Date: 20190930
  Receipt Date: 20190930
  Transmission Date: 20191005
  Serious: No
  Sender: FDA-Public Use
  Company Number: US-PFIZER INC-2019418310

PATIENT
  Age: 64 Year
  Sex: Female

DRUGS (3)
  1. IBRANCE [Suspect]
     Active Substance: PALBOCICLIB
     Dosage: 75 MG, DAILY
     Route: 048
     Dates: start: 20190921
  2. IBRANCE [Suspect]
     Active Substance: PALBOCICLIB
     Indication: OESTROGEN RECEPTOR POSITIVE BREAST CANCER
     Dosage: 125 MG, CYCLIC,(DAILY FOR 21 DAYS, THEN OFF 7 DAYS)
     Route: 048
     Dates: start: 20190727
  3. FULPHILA [Concomitant]
     Active Substance: PEGFILGRASTIM-JMDB
     Dosage: UNK

REACTIONS (4)
  - Red blood cell count decreased [Recovered/Resolved]
  - Intentional product misuse [Unknown]
  - Lacrimation increased [Recovered/Resolved]
  - Photophobia [Recovered/Resolved]
